FAERS Safety Report 10676198 (Version 1)
Quarter: 2014Q4

REPORT INFORMATION
  Report Type: Spontaneous
  Country: GB (occurrence: GB)
  Receive Date: 20141226
  Receipt Date: 20141226
  Transmission Date: 20150529
  Serious: Yes (Other)
  Sender: FDA-Public Use
  Company Number: GB-AUROBINDO-AUR-APL-2014-13137

PATIENT
  Age: 4 Year
  Sex: Female

DRUGS (9)
  1. LAMOTRIGINE CHEWABLE/DISPERSABLE TABLET [Suspect]
     Active Substance: LAMOTRIGINE
     Dosage: 10 MG, ONCE A DAY
     Route: 065
     Dates: start: 2014, end: 20141203
  2. MELATONIN [Concomitant]
     Active Substance: MELATONIN
     Indication: PRODUCT USED FOR UNKNOWN INDICATION
     Dosage: UNK
     Route: 065
  3. EPILIM [Concomitant]
     Active Substance: VALPROATE SODIUM
     Indication: PRODUCT USED FOR UNKNOWN INDICATION
     Dosage: 6 ML, TWO TIMES A DAY
     Route: 065
  4. LAMOTRIGINE CHEWABLE/DISPERSABLE TABLET [Suspect]
     Active Substance: LAMOTRIGINE
     Indication: PRODUCT USED FOR UNKNOWN INDICATION
     Dosage: 5 MG, UNK
     Route: 065
     Dates: start: 201402
  5. LAMOTRIGINE CHEWABLE/DISPERSABLE TABLET [Suspect]
     Active Substance: LAMOTRIGINE
     Dosage: 10 MG, TWO TIMES A DAY
     Route: 065
     Dates: start: 2014, end: 2014
  6. LAMOTRIGINE CHEWABLE/DISPERSABLE TABLET [Suspect]
     Active Substance: LAMOTRIGINE
     Dosage: 80 MG, ONCE A DAY
     Route: 065
     Dates: start: 201402
  7. KEPPRA [Concomitant]
     Active Substance: LEVETIRACETAM
     Indication: PRODUCT USED FOR UNKNOWN INDICATION
     Dosage: 4 ML, TWO TIMES A DAY
     Route: 065
  8. LAMOTRIGINE CHEWABLE/DISPERSABLE TABLET [Suspect]
     Active Substance: LAMOTRIGINE
     Dosage: 20 MG, TWO TIMES A DAY
     Route: 065
     Dates: start: 2014, end: 2014
  9. CLOBAZAM [Concomitant]
     Active Substance: CLOBAZAM
     Indication: PRODUCT USED FOR UNKNOWN INDICATION
     Dosage: 7 ML, TWO TIMES A DAY
     Route: 065

REACTIONS (6)
  - Psychomotor hyperactivity [Unknown]
  - Tremor [Unknown]
  - Insomnia [Recovered/Resolved]
  - Aggression [Unknown]
  - Condition aggravated [Unknown]
  - Gait disturbance [Unknown]

NARRATIVE: CASE EVENT DATE: 2014
